FAERS Safety Report 15999417 (Version 1)
Quarter: 2019Q1

REPORT INFORMATION
  Report Type: Spontaneous
  Country: US (occurrence: US)
  Receive Date: 20190222
  Receipt Date: 20190222
  Transmission Date: 20190418
  Serious: Yes (Other)
  Sender: FDA-Public Use
  Company Number: None

PATIENT
  Age: 67 Year
  Sex: Female

DRUGS (1)
  1. SEROVITAL [Suspect]
     Active Substance: DIETARY SUPPLEMENT
     Dates: start: 20190108, end: 20190112

REACTIONS (3)
  - Product use complaint [None]
  - Rash generalised [None]
  - Skin reaction [None]

NARRATIVE: CASE EVENT DATE: 20190108
